FAERS Safety Report 5339492-2 (Version None)
Quarter: 2007Q2

REPORT INFORMATION
  Report Type: 
  Country: None (occurrence: None)
  Receive Date: 20070525
  Receipt Date: 20070521
  Transmission Date: 20071010
  Serious: Yes (Life-Threatening, Hospitalization)
  Sender: FDA-Public Use
  Company Number: 2006-149247-NL

PATIENT
  Age: 26 Year
  Sex: Female

DRUGS (10)
  1. ROCURONIUM BROMIDE [Suspect]
     Indication: GENERAL ANAESTHESIA
     Dosage: 35 MG ONCE INTRAVENOUS (NOS)
     Route: 040
     Dates: start: 20061013, end: 20061013
  2. ROCURONIUM BROMIDE [Suspect]
     Indication: MUSCLE RELAXANT THERAPY
     Dosage: 35 MG ONCE INTRAVENOUS (NOS)
     Route: 040
     Dates: start: 20061013, end: 20061013
  3. SEVOFLURANE [Concomitant]
  4. THIOPENTAL SODIUM [Concomitant]
  5. FENTANYL [Concomitant]
  6. PROPOFOL [Concomitant]
  7. PARACETAMOL [Concomitant]
  8. MIDAZOLAM HYDROCHLORIDE [Concomitant]
  9. INSULIN ASPART [Concomitant]
  10. GRANISETRON [Concomitant]

REACTIONS (7)
  - ANAPHYLACTIC REACTION [None]
  - BRONCHIAL OBSTRUCTION [None]
  - FLUSHING [None]
  - HYPOTENSION [None]
  - OXYGEN SATURATION DECREASED [None]
  - SHOCK [None]
  - URTICARIA [None]
